FAERS Safety Report 4314603-6 (Version None)
Quarter: 2004Q1

REPORT INFORMATION
  Report Type: 
  Country: None (occurrence: None)
  Receive Date: 20040308
  Receipt Date: 20040227
  Transmission Date: 20041129
  Serious: Yes (Other)
  Sender: FDA-Public Use
  Company Number: 2004-01-2113

PATIENT
  Age: 35 Year
  Sex: Female

DRUGS (3)
  1. ELOCON [Suspect]
     Indication: DERMATITIS CONTACT
     Dosage: TOP-DERM
     Route: 061
     Dates: start: 20031015, end: 20040128
  2. CORTIMYCINE OINTMENT (HYDROCORTISONE ACETATE) OINTMENT [Suspect]
     Indication: ERYTHEMA
     Dosage: QD EYE
  3. IMPETEX (DIFLUCORTOLONE/CHLORQUINALDOL) CREAM [Suspect]
     Indication: ERYTHEMA
     Dosage: BID TOP-DERM
     Route: 061

REACTIONS (3)
  - ANAEMIA [None]
  - GRANULOMA [None]
  - SARCOIDOSIS [None]
